FAERS Safety Report 18547119 (Version 2)
Quarter: 2020Q4

REPORT INFORMATION
  Report Type: Spontaneous
  Country: NZ (occurrence: NZ)
  Receive Date: 20201125
  Receipt Date: 20201216
  Transmission Date: 20210114
  Serious: Yes (Other)
  Sender: FDA-Public Use
  Company Number: NZ-ELI_LILLY_AND_COMPANY-NZ202011007122

PATIENT
  Age: 47 Year
  Sex: Male

DRUGS (3)
  1. ZYPREXA RELPREVV [Suspect]
     Active Substance: OLANZAPINE PAMOATE
     Indication: PRODUCT USED FOR UNKNOWN INDICATION
     Dosage: 405 MG, 2/M (FORTNIGHTLY)
     Route: 065
  2. ZYPREXA RELPREVV [Suspect]
     Active Substance: OLANZAPINE PAMOATE
     Indication: PRODUCT USED FOR UNKNOWN INDICATION
     Dosage: 405 MG, 2/M (FORTNIGHTLY)
     Route: 065
  3. ZYPREXA RELPREVV [Suspect]
     Active Substance: OLANZAPINE PAMOATE
     Indication: PRODUCT USED FOR UNKNOWN INDICATION
     Dosage: 405 MG, 2/M (FORTNIGHTLY)
     Route: 065

REACTIONS (7)
  - Agitation [Unknown]
  - Sedation [Unknown]
  - Dyspnoea [Unknown]
  - Post-injection delirium sedation syndrome [Unknown]
  - Somnolence [Unknown]
  - Pollakiuria [Unknown]
  - Anxiety [Unknown]
